FAERS Safety Report 9215991 (Version 4)
Quarter: 2013Q3

REPORT INFORMATION
  Report Type: Spontaneous
  Country: FR (occurrence: FR)
  Receive Date: 20130408
  Receipt Date: 20130702
  Transmission Date: 20140515
  Serious: Yes (Hospitalization)
  Sender: FDA-Public Use
  Company Number: FR-JNJFOC-20130402802

PATIENT
  Age: 43 Year
  Sex: Male
  Weight: 98 kg

DRUGS (4)
  1. STELARA [Suspect]
     Indication: PSORIASIS
     Dosage: INITIATED 3 WEEKS PRIOR TO REPORT
     Route: 058
     Dates: start: 20130312
  2. EFFERALGAN CODEINE [Suspect]
     Indication: PRODUCT USED FOR UNKNOWN INDICATION
     Route: 065
  3. TEMESTA [Concomitant]
     Indication: ANXIETY
     Route: 065
     Dates: start: 20130215
  4. ATARAX [Concomitant]
     Indication: PRURITUS
     Route: 065
     Dates: start: 20130301

REACTIONS (4)
  - Psoriasis [Unknown]
  - Oedema peripheral [Unknown]
  - Hypersensitivity [Recovered/Resolved]
  - Paradoxical drug reaction [Unknown]
